FAERS Safety Report 5710506-0 (Version None)
Quarter: 2008Q2

REPORT INFORMATION
  Report Type: 
  Country: None (occurrence: None)
  Receive Date: 20080414
  Receipt Date: 20080317
  Transmission Date: 20081010
  Serious: Yes (Hospitalization, Other)
  Sender: FDA-Public Use
  Company Number: GXKR2008GB02515

PATIENT
  Age: 56 Year
  Sex: Female

DRUGS (6)
  1. DIPHENHYDRAMINE (NGX)(DIPHENHYDRAMINE) UNKNOWN [Suspect]
     Indication: INSOMNIA
     Dosage: 50 MG NOCTE,; THIRTY 50MG TABLETS DAILY,; UP TO FIFTY 50 MG TABLETS,; 400 MG, QD,
  2. LORAZEPAM [Concomitant]
  3. TEMAZEPAM [Concomitant]
  4. VENLAFAXINE HCL [Concomitant]
  5. OLANZAPINE [Concomitant]
  6. FLUPENTIXOL (FLUPENTIXOL) [Concomitant]

REACTIONS (16)
  - ABDOMINAL DISCOMFORT [None]
  - ACCIDENTAL OVERDOSE [None]
  - ANXIETY [None]
  - AUTONOMIC NERVOUS SYSTEM IMBALANCE [None]
  - BLOOD PRESSURE ABNORMAL [None]
  - CONVULSION [None]
  - DRUG ABUSE [None]
  - HYPERHIDROSIS [None]
  - IRRITABILITY [None]
  - LOSS OF CONSCIOUSNESS [None]
  - MEMORY IMPAIRMENT [None]
  - MYALGIA [None]
  - RESTLESSNESS [None]
  - STOMACH DISCOMFORT [None]
  - TREMOR [None]
  - WITHDRAWAL SYNDROME [None]
